FAERS Safety Report 9008753 (Version 5)
Quarter: 2013Q4

REPORT INFORMATION
  Report Type: Spontaneous
  Country: US (occurrence: US)
  Receive Date: 20130111
  Receipt Date: 20131217
  Transmission Date: 20140711
  Serious: Yes (Hospitalization, Other)
  Sender: FDA-Public Use
  Company Number: US-009507513-1301USA002723

PATIENT
  Sex: Female
  Weight: 78.91 kg

DRUGS (11)
  1. FOSAMAX [Suspect]
     Indication: OSTEOPOROSIS
     Dosage: 10 MG, UNK
     Route: 048
     Dates: start: 199510
  2. FOSAMAX [Suspect]
     Dosage: 70 MG, QW
     Route: 048
  3. FOSAMAX PLUS D [Suspect]
     Indication: OSTEOPOROSIS
     Dosage: 70 MG/2800 IU, QW
     Route: 048
     Dates: start: 20050719, end: 20081110
  4. ALENDRONATE SODIUM [Suspect]
     Indication: OSTEOPOROSIS
     Dosage: 70 MG, UNK
     Route: 048
     Dates: start: 20090112, end: 20101102
  5. CALCIUM (UNSPECIFIED) (+) VITAMIN D (UNSPECIFIED) [Concomitant]
     Dosage: 1000 IU, UNK
     Dates: start: 2000
  6. PROAIR HFA [Concomitant]
     Indication: ASTHMA
     Dosage: UNK
     Dates: start: 1985
  7. ADVAIR [Concomitant]
     Indication: ASTHMA
     Dosage: UNK
     Dates: start: 2000
  8. TERBUTALINE SULFATE [Concomitant]
     Indication: ASTHMA
     Dosage: UNK
     Dates: start: 1980
  9. SINGULAIR [Concomitant]
     Indication: HYPERSENSITIVITY
     Dosage: 10 MG, QD
     Route: 048
  10. SINGULAIR [Concomitant]
     Indication: ASTHMA
  11. ALLEGRA [Concomitant]
     Indication: HYPERSENSITIVITY
     Dosage: 180 MG, QD PRN
     Route: 048

REACTIONS (35)
  - Knee arthroplasty [Unknown]
  - Osteopenia [Unknown]
  - Limb injury [Unknown]
  - Osteoarthritis [Unknown]
  - Tonsillectomy [Unknown]
  - Anaemia postoperative [Recovering/Resolving]
  - Pneumonia [Unknown]
  - Chronic obstructive pulmonary disease [Not Recovered/Not Resolved]
  - Urinary incontinence [Unknown]
  - Joint injury [Unknown]
  - Hypothyroidism [Unknown]
  - Muscular weakness [Unknown]
  - Macular degeneration [Unknown]
  - Vitreous floaters [Unknown]
  - Ligament sprain [Unknown]
  - Muscle strain [Unknown]
  - Gait disturbance [Unknown]
  - Hernia repair [Unknown]
  - Cataract operation [Unknown]
  - Fall [Unknown]
  - Anaemia [Unknown]
  - Haematoma [Unknown]
  - Spinal osteoarthritis [Unknown]
  - Cardiomegaly [Unknown]
  - Procedural nausea [Unknown]
  - Pain in extremity [Unknown]
  - Arthralgia [Unknown]
  - Constipation [Unknown]
  - Femur fracture [Recovering/Resolving]
  - Intramedullary rod insertion [Unknown]
  - Femur fracture [Recovered/Resolved]
  - Intramedullary rod insertion [Unknown]
  - Knee arthroplasty [Unknown]
  - Cholecystectomy [Unknown]
  - Spinal fusion surgery [Unknown]
